FAERS Safety Report 8911868 (Version 3)
Quarter: 2012Q4

REPORT INFORMATION
  Report Type: 
  Country: JP (occurrence: JP)
  Receive Date: 20121115
  Receipt Date: 20121203
  Transmission Date: 20130627
  Serious: Yes (Hospitalization)
  Sender: FDA-Public Use
  Company Number: JP-GLAXOSMITHKLINE-B0843610A

PATIENT
  Age: 72 Year
  Sex: Female

DRUGS (6)
  1. LAMICTAL [Suspect]
     Indication: BIPOLAR DISORDER
     Dosage: 25MG Per day
     Route: 048
     Dates: start: 20120926, end: 20121025
  2. LAMICTAL [Suspect]
     Indication: BIPOLAR DISORDER
     Dosage: 100MG Per day
     Route: 048
     Dates: start: 20121026, end: 20121031
  3. ETIZOLAM [Concomitant]
     Indication: BIPOLAR DISORDER
     Dosage: 1MG Per day
     Route: 048
     Dates: start: 20121024, end: 20121026
  4. MIRTAZAPINE [Concomitant]
     Dosage: 30MG Per day
     Route: 048
     Dates: end: 20121109
  5. LOXOPROFEN SODIUM [Concomitant]
     Dosage: 60MG Three times per day
     Route: 048
     Dates: start: 20121026, end: 20121105
  6. TEPRENONE [Concomitant]
     Dosage: 50MG Three times per day
     Route: 048
     Dates: start: 20121026, end: 20121105

REACTIONS (5)
  - Drug eruption [Recovering/Resolving]
  - Erythema [Unknown]
  - Generalised erythema [Unknown]
  - Mental disorder [Unknown]
  - Liver disorder [Unknown]
